FAERS Safety Report 5343415-X (Version None)
Quarter: 2007Q2

REPORT INFORMATION
  Report Type: 
  Country: None (occurrence: None)
  Receive Date: 20070531
  Receipt Date: 20070419
  Transmission Date: 20071010
  Serious: Yes (Hospitalization)
  Sender: FDA-Public Use
  Company Number: 26229

PATIENT
  Age: 30 Year
  Sex: Female

DRUGS (2)
  1. MAXITROL [Suspect]
     Indication: CONJUNCTIVITIS
     Dosage: EYE OINTMENT, BID, OPHTHALMIC
     Route: 047
     Dates: start: 20020801
  2. MAXITROL [Suspect]
     Indication: CORNEAL ABRASION
     Dosage: EYE OINTMENT, BID, OPHTHALMIC
     Route: 047
     Dates: start: 20020801

REACTIONS (6)
  - CORNEAL ABSCESS [None]
  - CORNEAL LEUKOMA [None]
  - CORNEAL OEDEMA [None]
  - HYPOPYON [None]
  - PSEUDOMONAS INFECTION [None]
  - VISUAL ACUITY REDUCED [None]
